FAERS Safety Report 5097935-6 (Version None)
Quarter: 2006Q3

REPORT INFORMATION
  Report Type: 
  Country: None (occurrence: None)
  Receive Date: 20060905
  Receipt Date: 20060905
  Transmission Date: 20061208
  Serious: Yes (Hospitalization)
  Sender: FDA-Public Use
  Company Number: None

PATIENT
  Age: 62 Year
  Sex: Male
  Weight: 97.5234 kg

DRUGS (3)
  1. LIPITOR [Suspect]
     Indication: BLOOD CHOLESTEROL INCREASED
     Dosage: CAPSULE ONCE DAILY PO
     Route: 048
     Dates: start: 20040101, end: 20060501
  2. CRESTOR [Suspect]
     Indication: BLOOD CHOLESTEROL INCREASED
     Dosage: CAPSULE ONCE DAILY PO
     Route: 048
     Dates: start: 20040101, end: 20060501
  3. TRICOR [Suspect]
     Indication: BLOOD CHOLESTEROL INCREASED
     Dosage: CAPSULE ONCE DAILY PO
     Route: 048
     Dates: start: 20060501, end: 20060830

REACTIONS (6)
  - ARRHYTHMIA [None]
  - ARTERIOSCLEROSIS CORONARY ARTERY [None]
  - CORONARY ARTERY BYPASS [None]
  - NEUROPATHY [None]
  - PERIPHERAL NERVE OPERATION [None]
  - RHABDOMYOLYSIS [None]
